FAERS Safety Report 6434485-6 (Version None)
Quarter: 2009Q4

REPORT INFORMATION
  Report Type: 
  Country: None (occurrence: None)
  Receive Date: 20091110
  Receipt Date: 20091028
  Transmission Date: 20100525
  Serious: Yes (Death)
  Sender: FDA-Public Use
  Company Number: BR-PFIZER INC-2009211850

PATIENT
  Sex: Female

DRUGS (1)
  1. FRONTAL [Suspect]
     Indication: ANXIETY

REACTIONS (2)
  - INFECTION [None]
  - RENAL FAILURE [None]
